FAERS Safety Report 6774757-9 (Version None)
Quarter: 2010Q2

REPORT INFORMATION
  Report Type: 
  Country: None (occurrence: None)
  Receive Date: 20100616
  Receipt Date: 20100616
  Transmission Date: 20101027
  Serious: Yes (Other)
  Sender: FDA-Public Use
  Company Number: None

PATIENT
  Age: 28 Year
  Sex: Female
  Weight: 56.6996 kg

DRUGS (2)
  1. PREDNISONE TAB [Suspect]
     Indication: INFLAMMATION
     Dosage: 40 MG DAILY
     Dates: start: 20100401, end: 20100410
  2. PREDNISONE TAB [Suspect]
     Indication: SINUSITIS
     Dosage: 40 MG DAILY
     Dates: start: 20100401, end: 20100410

REACTIONS (5)
  - ACNE [None]
  - ACTIVITIES OF DAILY LIVING IMPAIRED [None]
  - FEELING ABNORMAL [None]
  - SELF-INJURIOUS IDEATION [None]
  - SUICIDAL IDEATION [None]
